FAERS Safety Report 9850826 (Version 1)
Quarter: 2014Q1

REPORT INFORMATION
  Report Type: Spontaneous
  Country: DE (occurrence: DE)
  Receive Date: 20140128
  Receipt Date: 20140128
  Transmission Date: 20141002
  Serious: Yes (Congenital Anomaly)
  Sender: FDA-Public Use
  Company Number: DE-TEVA-457859GER

PATIENT
  Age: 1 Day
  Sex: Female

DRUGS (4)
  1. LAMOTRIGIN [Suspect]
     Route: 064
  2. CLOBAZAM [Suspect]
     Route: 064
  3. VALPROAT [Concomitant]
     Route: 064
  4. FOLSAEURE [Concomitant]
     Route: 064

REACTIONS (2)
  - Pyloric stenosis [Recovered/Resolved with Sequelae]
  - Neonatal respiratory distress syndrome [Recovered/Resolved]
